FAERS Safety Report 4578750-6 (Version None)
Quarter: 2005Q1

REPORT INFORMATION
  Report Type: 
  Country: None (occurrence: None)
  Receive Date: 20050211
  Receipt Date: 20050208
  Transmission Date: 20050727
  Serious: Yes (Other)
  Sender: FDA-Public Use
  Company Number: DE-GLAXOSMITHKLINE-D0045844A

PATIENT
  Age: 35 Year
  Sex: Female
  Weight: 62 kg

DRUGS (6)
  1. VIANI [Suspect]
     Indication: ASTHMA
     Route: 055
     Dates: start: 20021001
  2. VIANI FORTE [Suspect]
     Indication: ASTHMA
     Route: 055
  3. BUDESONID [Suspect]
     Indication: ASTHMA
     Route: 065
     Dates: start: 20010801, end: 20021001
  4. ALBUTEROL [Concomitant]
     Route: 055
  5. CALCIUM FORTE [Concomitant]
     Route: 065
  6. VITAMIN D [Concomitant]
     Route: 030

REACTIONS (6)
  - ADRENAL CORTICAL INSUFFICIENCY [None]
  - HOT FLUSH [None]
  - HYPERHIDROSIS [None]
  - MOOD ALTERED [None]
  - OSTEOPOROSIS POSTMENOPAUSAL [None]
  - PREMATURE MENOPAUSE [None]
